FAERS Safety Report 23513288 (Version 1)
Quarter: 2024Q1

REPORT INFORMATION
  Report Type: Spontaneous
  Country: RU (occurrence: RU)
  Receive Date: 20240212
  Receipt Date: 20240212
  Transmission Date: 20240410
  Serious: Yes (Other)
  Sender: FDA-Public Use
  Company Number: None

PATIENT
  Age: 1 Year
  Sex: Female
  Weight: 11 kg

DRUGS (1)
  1. ZOLGENSMA [Suspect]
     Active Substance: ONASEMNOGENE ABEPARVOVEC-XIOI
     Indication: Spinal muscular atrophy
     Dosage: 2X 10*13 VECTOR GENOME (ONCE)
     Route: 041
     Dates: start: 20231215, end: 20231215

REACTIONS (1)
  - Transaminases abnormal [Not Recovered/Not Resolved]

NARRATIVE: CASE EVENT DATE: 20240104
